FAERS Safety Report 15065579 (Version 3)
Quarter: 2018Q3

REPORT INFORMATION
  Report Type: Report from Study
  Country: None (occurrence: US)
  Receive Date: 20180626
  Receipt Date: 20180821
  Transmission Date: 20181010
  Serious: Yes (Hospitalization, Other)
  Sender: FDA-Public Use
  Company Number: US-ABBVIE-18K-163-2395243-00

PATIENT
  Sex: Female
  Weight: 79.45 kg

DRUGS (2)
  1. ICAR [Concomitant]
     Indication: PRODUCT USED FOR UNKNOWN INDICATION
  2. HUMIRA [Suspect]
     Active Substance: ADALIMUMAB
     Indication: CROHN^S DISEASE
     Route: 058
     Dates: start: 201802

REACTIONS (16)
  - Arthritis [Recovering/Resolving]
  - Gastrointestinal pain [Recovering/Resolving]
  - Renal disorder [Recovering/Resolving]
  - Gout [Recovered/Resolved]
  - Asthenia [Not Recovered/Not Resolved]
  - Nausea [Recovered/Resolved]
  - Diarrhoea [Unknown]
  - Pre-existing condition improved [Unknown]
  - Abdominal pain [Recovered/Resolved]
  - Food poisoning [Recovering/Resolving]
  - Gastrointestinal haemorrhage [Unknown]
  - Contusion [Recovering/Resolving]
  - Therapeutic response unexpected [Unknown]
  - Peripheral swelling [Recovered/Resolved]
  - Musculoskeletal disorder [Not Recovered/Not Resolved]
  - Blood iron decreased [Recovering/Resolving]

NARRATIVE: CASE EVENT DATE: 2018
